FAERS Safety Report 10427105 (Version 1)
Quarter: 2014Q3

REPORT INFORMATION
  Report Type: Spontaneous
  Country: US (occurrence: US)
  Receive Date: 20140903
  Receipt Date: 20140903
  Transmission Date: 20150326
  Serious: No
  Sender: FDA-Public Use
  Company Number: US-BANPHARM-20142218

PATIENT
  Age: 59 Year
  Sex: Female
  Weight: 77.11 kg

DRUGS (5)
  1. LEXAPRO [Concomitant]
     Active Substance: ESCITALOPRAM OXALATE
     Dosage: 1 DF, QD,
  2. CENTRUM FOR WOMEN [Concomitant]
     Dosage: 1 DF, QD,
  3. FISH OIL [Concomitant]
     Active Substance: FISH OIL
     Dosage: 1 DF, QD,
  4. VITAMIN B COMPLEX [Concomitant]
     Active Substance: CYANOCOBALAMIN\DEXPANTHENOL\NIACINAMIDE\PYRIDOXINE HYDROCHLORIDE\RIBOFLAVIN 5^-PHOSPHATE SODIUM\THIAMINE HYDROCHLORIDE\VITAMIN B COMPLEX
     Dosage: 1 DF, QD,
  5. ZYRTEC [Suspect]
     Active Substance: CETIRIZINE HYDROCHLORIDE
     Indication: HYPERSENSITIVITY
     Dosage: 1 DF, QD,
     Route: 048
     Dates: start: 20140217

REACTIONS (1)
  - Drug effect incomplete [Unknown]
